FAERS Safety Report 17342738 (Version 1)
Quarter: 2020Q1

REPORT INFORMATION
  Report Type: Spontaneous
  Country: HR (occurrence: HR)
  Receive Date: 20200129
  Receipt Date: 20200129
  Transmission Date: 20200409
  Serious: Yes (Other)
  Sender: FDA-Public Use
  Company Number: HR-SAMSUNG BIOEPIS-SB-2020-02318

PATIENT
  Age: 35 Year
  Sex: Female
  Weight: 77 kg

DRUGS (1)
  1. FLIXABI [Suspect]
     Active Substance: INFLIXIMAB
     Indication: COLITIS ULCERATIVE
     Route: 042
     Dates: start: 20181205, end: 20190919

REACTIONS (3)
  - Mucous stools [Unknown]
  - Colitis ulcerative [Unknown]
  - Haematochezia [Unknown]

NARRATIVE: CASE EVENT DATE: 201909
